FAERS Safety Report 7762280-4 (Version None)
Quarter: 2011Q3

REPORT INFORMATION
  Report Type: 
  Country: None (occurrence: None)
  Receive Date: 20110920
  Receipt Date: 20110909
  Transmission Date: 20111222
  Serious: Yes (Death, Hospitalization, Other)
  Sender: FDA-Public Use
  Company Number: US-ROCHE-779605

PATIENT
  Sex: Male
  Weight: 97.5 kg

DRUGS (4)
  1. ACCUTANE [Suspect]
     Route: 048
     Dates: start: 20001201
  2. CLINDAMYCIN [Concomitant]
     Indication: ACNE
     Dates: start: 20000112
  3. ACCUTANE [Suspect]
     Indication: ACNE
     Dosage: FREQUENCY: QD
     Route: 048
     Dates: start: 20000112, end: 20000501
  4. ACCUTANE [Suspect]
     Route: 048
     Dates: end: 20000601

REACTIONS (12)
  - DEPRESSION [None]
  - ABDOMINAL PAIN [None]
  - RECTAL HAEMORRHAGE [None]
  - IRRITABLE BOWEL SYNDROME [None]
  - IRON DEFICIENCY ANAEMIA [None]
  - INTESTINAL OBSTRUCTION [None]
  - COLITIS ULCERATIVE [None]
  - LIVER FUNCTION TEST ABNORMAL [None]
  - COLON CANCER METASTATIC [None]
  - ARTHRITIS [None]
  - INFLAMMATORY BOWEL DISEASE [None]
  - PELVIC ABSCESS [None]
